FAERS Safety Report 10657912 (Version 2)
Quarter: 2014Q4

REPORT INFORMATION
  Report Type: Spontaneous
  Country: FR (occurrence: FR)
  Receive Date: 20141217
  Receipt Date: 20141217
  Transmission Date: 20150529
  Serious: Yes (Other)
  Sender: FDA-Public Use
  Company Number: FR-009507513-1409FRA005372

PATIENT
  Age: 33 Year
  Sex: Female
  Weight: 73 kg

DRUGS (2)
  1. NUVARING [Suspect]
     Active Substance: ETHINYL ESTRADIOL\ETONOGESTREL
     Dosage: TWO LAST RINGS WERE KEPT INSERTED IN THE VAGINA DURING ALL THE DURATION OF 3 PLANNED WEEKS
     Route: 067
  2. NUVARING [Suspect]
     Active Substance: ETHINYL ESTRADIOL\ETONOGESTREL
     Dosage: UNK
     Route: 067
     Dates: start: 200809

REACTIONS (3)
  - Unintended pregnancy [Recovered/Resolved]
  - Abortion induced [Unknown]
  - Overdose [Unknown]

NARRATIVE: CASE EVENT DATE: 20140708
